FAERS Safety Report 21451751 (Version 1)
Quarter: 2022Q4

REPORT INFORMATION
  Report Type: Spontaneous
  Country: US (occurrence: US)
  Receive Date: 20221013
  Receipt Date: 20221013
  Transmission Date: 20230112
  Serious: No
  Sender: FDA-Public Use
  Company Number: US-GSK-US2022141922

PATIENT
  Age: 56 Year
  Sex: Male

DRUGS (1)
  1. JEMPERLI [Suspect]
     Active Substance: DOSTARLIMAB-GXLY
     Indication: Rectal cancer
     Dosage: 500 MG (Q3W)
     Route: 042
     Dates: start: 20220805

REACTIONS (2)
  - Neoplasm [Unknown]
  - COVID-19 [Not Recovered/Not Resolved]

NARRATIVE: CASE EVENT DATE: 20220927
